FAERS Safety Report 5118628-2 (Version None)
Quarter: 2006Q4

REPORT INFORMATION
  Report Type: 
  Country: None (occurrence: None)
  Receive Date: 20061002
  Receipt Date: 20060921
  Transmission Date: 20070319
  Serious: Yes (Hospitalization)
  Sender: FDA-Public Use
  Company Number: GB-GLAXOSMITHKLINE-B0439181A

PATIENT

DRUGS (1)
  1. ALBUTEROL SPIROS [Suspect]
     Route: 048

REACTIONS (3)
  - HYPOKALAEMIA [None]
  - INCORRECT DOSE ADMINISTERED [None]
  - POISONING DELIBERATE [None]
